FAERS Safety Report 15019709 (Version 6)
Quarter: 2019Q2

REPORT INFORMATION
  Report Type: Report from Study
  Country: None (occurrence: US)
  Receive Date: 20180618
  Receipt Date: 20190619
  Transmission Date: 20190711
  Serious: Yes (Other)
  Sender: FDA-Public Use
  Company Number: US-ABBVIE-18K-163-2387078-00

PATIENT
  Age: 54 Year
  Sex: Female

DRUGS (2)
  1. HUMIRA [Suspect]
     Active Substance: ADALIMUMAB
     Indication: PSORIATIC ARTHROPATHY
     Dosage: CITRATE FREE
     Route: 058
  2. HUMIRA [Suspect]
     Active Substance: ADALIMUMAB
     Indication: RHEUMATOID ARTHRITIS

REACTIONS (17)
  - Rash [Unknown]
  - Blood pressure abnormal [Unknown]
  - Lymphadenopathy [Unknown]
  - Pain of skin [Unknown]
  - Erythema [Unknown]
  - Meniscus injury [Unknown]
  - Osteoporosis [Unknown]
  - Mass [Unknown]
  - Heart rate decreased [Unknown]
  - Skin burning sensation [Unknown]
  - Injection site pain [Unknown]
  - Psoriasis [Unknown]
  - Hypertension [Unknown]
  - Back pain [Unknown]
  - Joint swelling [Unknown]
  - Oedema peripheral [Unknown]
  - Peripheral swelling [Unknown]

NARRATIVE: CASE EVENT DATE: 2017
